FAERS Safety Report 9980851 (Version 1)
Quarter: 2014Q1

REPORT INFORMATION
  Report Type: Spontaneous
  Country: GB (occurrence: None)
  Receive Date: 20140305
  Receipt Date: 20140305
  Transmission Date: 20141002
  Serious: Yes (Other)
  Sender: FDA-Public Use
  Company Number: AUR-APL-2014-02172

PATIENT
  Age: 32 Year
  Sex: Female
  Weight: 74.11 kg

DRUGS (3)
  1. MIRTAZAPINE [Suspect]
     Indication: PERSONALITY DISORDER
     Route: 048
     Dates: start: 20130205, end: 20140211
  2. MIRTAZAPINE [Suspect]
     Indication: DEPRESSION
     Route: 048
     Dates: start: 20130205, end: 20140211
  3. MIRTAZAPINE [Suspect]
     Indication: OFF LABEL USE
     Route: 048
     Dates: start: 20130205, end: 20140211

REACTIONS (10)
  - Off label use [None]
  - Liver function test abnormal [None]
  - Dyspnoea [None]
  - Dizziness [None]
  - Abdominal distension [None]
  - Eating disorder [None]
  - Oedema [None]
  - Abdominal pain upper [None]
  - Malaise [None]
  - Abnormal weight gain [None]
